FAERS Safety Report 7515085-3 (Version None)
Quarter: 2011Q2

REPORT INFORMATION
  Report Type: 
  Country: None (occurrence: None)
  Receive Date: 20110526
  Receipt Date: 20110526
  Transmission Date: 20111010
  Serious: Yes (Hospitalization)
  Sender: FDA-Public Use
  Company Number: None

PATIENT
  Age: 61 Year
  Sex: Male
  Weight: 67 kg

DRUGS (2)
  1. ENALAPRIL MALEATE [Suspect]
     Indication: HYPERTENSION
     Dosage: 40MG EVERY DAY PO
     Route: 048
     Dates: start: 20100201, end: 20110521
  2. ATENOLOL [Suspect]
     Indication: HYPERTENSION
     Dosage: 12.5MG EVERY DAY PO
     Route: 048
     Dates: start: 20100201, end: 20110521

REACTIONS (1)
  - ORTHOSTATIC HYPOTENSION [None]
